FAERS Safety Report 20044726 (Version 2)
Quarter: 2021Q4

REPORT INFORMATION
  Report Type: Report from Study
  Country: ES (occurrence: ES)
  Receive Date: 20211108
  Receipt Date: 20211203
  Transmission Date: 20220303
  Serious: Yes (Hospitalization, Other)
  Sender: FDA-Public Use
  Company Number: ES-PFM-2021-05758

PATIENT
  Age: 66 Year
  Sex: Male

DRUGS (14)
  1. ENCORAFENIB [Suspect]
     Active Substance: ENCORAFENIB
     Indication: Malignant melanoma
     Dosage: 450 MG, CYCLE 1
     Route: 065
     Dates: start: 20200129
  2. ENCORAFENIB [Suspect]
     Active Substance: ENCORAFENIB
     Dosage: 450 MG, CYCLE 18 BEFORE SAE
     Route: 065
     Dates: start: 20210513
  3. ENCORAFENIB [Suspect]
     Active Substance: ENCORAFENIB
     Dosage: UNKNOWN DAILY DOSE
     Route: 065
     Dates: start: 20210514, end: 20210516
  4. ENCORAFENIB [Suspect]
     Active Substance: ENCORAFENIB
     Dosage: 450 MG, CYCLE 16 BEFORE SAE
     Route: 065
     Dates: start: 20210416
  5. BINIMETINIB [Suspect]
     Active Substance: BINIMETINIB
     Indication: Malignant melanoma
     Dosage: 90 MG, CYCLE1
     Route: 065
     Dates: start: 20200129
  6. BINIMETINIB [Suspect]
     Active Substance: BINIMETINIB
     Dosage: 90 MG, CYCLE 18 BEFORE SAE
     Route: 065
     Dates: start: 20210513
  7. BINIMETINIB [Suspect]
     Active Substance: BINIMETINIB
     Dosage: UNKNOWN DAILY DOSE
     Route: 065
     Dates: start: 20210514, end: 20210516
  8. BINIMETINIB [Suspect]
     Active Substance: BINIMETINIB
     Dosage: 90 MG, CYCLE 16 BEFORE SAE
     Route: 065
     Dates: start: 20210416
  9. ATORVASTATIN [Concomitant]
     Active Substance: ATORVASTATIN
     Indication: Hypercholesterolaemia
     Dosage: 40 MG DAILY
     Route: 048
     Dates: start: 20191122
  10. BISOPROLOL [Concomitant]
     Active Substance: BISOPROLOL
     Indication: Hypertension
     Dosage: 5 MG DAILY
     Route: 048
     Dates: start: 20130828
  11. EDOXABAN TOSYLATE [Concomitant]
     Active Substance: EDOXABAN TOSYLATE
     Dosage: 60 MG DAILY
     Route: 048
     Dates: start: 20190530
  12. HYDROCHLOROTHIAZIDE\LISINOPRIL [Concomitant]
     Active Substance: HYDROCHLOROTHIAZIDE\LISINOPRIL
     Indication: Hypertension
     Dosage: 20/12.5 MG DAILY
     Route: 048
     Dates: start: 20160408
  13. KEPPRA [Concomitant]
     Active Substance: LEVETIRACETAM
     Indication: Epilepsy
     Dosage: 200 MG DAILY
     Route: 048
  14. LACOSAMIDE [Concomitant]
     Active Substance: LACOSAMIDE
     Indication: Epilepsy
     Dosage: 450 MG DAILY
     Route: 048

REACTIONS (2)
  - Blood creatinine increased [Recovered/Resolved]
  - Epilepsy [Recovered/Resolved]

NARRATIVE: CASE EVENT DATE: 20210427
